FAERS Safety Report 17767695 (Version 6)
Quarter: 2021Q1

REPORT INFORMATION
  Report Type: Spontaneous
  Country: DE (occurrence: DE)
  Receive Date: 20200511
  Receipt Date: 20210326
  Transmission Date: 20210419
  Serious: Yes (Hospitalization, Other)
  Sender: FDA-Public Use
  Company Number: NVSC2020DE126366

PATIENT
  Sex: Female
  Weight: 77 kg

DRUGS (8)
  1. VALSARTAN. [Suspect]
     Active Substance: VALSARTAN
     Indication: HYPERTENSION
     Dosage: 80 MG, BID
     Route: 065
     Dates: start: 201511, end: 201810
  2. VALSARTAN. [Suspect]
     Active Substance: VALSARTAN
     Dosage: 160 MG
     Route: 065
  3. CANDESARTAN. [Concomitant]
     Active Substance: CANDESARTAN
     Indication: PRODUCT USED FOR UNKNOWN INDICATION
     Dosage: 80 MG, QD (MORNING)1?0?0
     Route: 065
     Dates: start: 201810
  4. BISOHEXAL PLUS [Concomitant]
     Active Substance: BISOPROLOL FUMARATE\HYDROCHLOROTHIAZIDE
     Indication: PRODUCT USED FOR UNKNOWN INDICATION
     Dosage: 5 MG, QD (MORNING) 1?0?0
     Route: 065
  5. NOVALGIN [Concomitant]
     Indication: PRODUCT USED FOR UNKNOWN INDICATION
     Dosage: 500 MG/ML
     Route: 065
  6. EUTHYROX [Concomitant]
     Active Substance: LEVOTHYROXINE SODIUM
     Indication: PRODUCT USED FOR UNKNOWN INDICATION
     Dosage: 75 UG
     Route: 065
  7. IBUFLAM [Concomitant]
     Indication: PRODUCT USED FOR UNKNOWN INDICATION
     Dosage: 600 MG
     Route: 065
  8. VELAFEE [Concomitant]
     Active Substance: DIENOGEST\ETHINYL ESTRADIOL
     Indication: PRODUCT USED FOR UNKNOWN INDICATION
     Dosage: 0.03/2 MG
     Route: 065

REACTIONS (14)
  - Panic attack [Unknown]
  - Headache [Unknown]
  - Gastroenteritis [Recovered/Resolved]
  - Skin disorder [Not Recovered/Not Resolved]
  - Diarrhoea [Unknown]
  - Depression [Not Recovered/Not Resolved]
  - Sleep disorder [Unknown]
  - Somatic symptom disorder [Unknown]
  - Mental disorder [Not Recovered/Not Resolved]
  - Intervertebral disc protrusion [Unknown]
  - Anxiety disorder [Unknown]
  - Gastrointestinal disorder [Not Recovered/Not Resolved]
  - Suicidal ideation [Unknown]
  - Nervousness [Unknown]

NARRATIVE: CASE EVENT DATE: 2015
